FAERS Safety Report 16095889 (Version 1)
Quarter: 2019Q2

REPORT INFORMATION
  Report Type: Spontaneous
  Country: US (occurrence: US)
  Receive Date: 20190320
  Receipt Date: 20190320
  Transmission Date: 20190711
  Serious: Yes (Life-Threatening, Hospitalization)
  Sender: FDA-Public Use
  Company Number: None

PATIENT
  Age: 68 Year
  Sex: Female
  Weight: 67.5 kg

DRUGS (5)
  1. FEXOFENADINE 180 MG [Concomitant]
     Active Substance: FEXOFENADINE\FEXOFENADINE HYDROCHLORIDE
     Dates: start: 20190213
  2. ROSUVASTATIN 5 MG [Concomitant]
     Active Substance: ROSUVASTATIN
     Dates: start: 20190213
  3. LOSARTAN/HYDROCHLOROTHIAZINE 100/12.5 MG [Concomitant]
     Dates: start: 20190213
  4. LEVOTHYROXINE 88 MCG [Concomitant]
     Active Substance: LEVOTHYROXINE
     Dates: start: 20190213
  5. ERTAPENEM. [Suspect]
     Active Substance: ERTAPENEM SODIUM
     Indication: PERITONEAL ABSCESS
     Route: 041
     Dates: start: 20190302, end: 20190302

REACTIONS (3)
  - Dizziness [None]
  - Blood pressure immeasurable [None]
  - Loss of consciousness [None]

NARRATIVE: CASE EVENT DATE: 20190302
